FAERS Safety Report 10501131 (Version 1)
Quarter: 2014Q4

REPORT INFORMATION
  Report Type: Spontaneous
  Country: US (occurrence: None)
  Receive Date: 20141006
  Receipt Date: 20141006
  Transmission Date: 20150528
  Serious: Yes (Other)
  Sender: FDA-Public Use
  Company Number: None

PATIENT
  Age: 69 Year
  Sex: Female
  Weight: 71.67 kg

DRUGS (12)
  1. PREDNISONE. [Concomitant]
     Active Substance: PREDNISONE
  2. VITAMIN D-3 [Concomitant]
  3. LISINOPRIL. [Concomitant]
     Active Substance: LISINOPRIL
  4. SILDENAFIL. [Suspect]
     Active Substance: SILDENAFIL
     Indication: VASCULITIS
     Dosage: 270 TABLETS 3 TIMES IN 24 HR PERIOD BY MOUTH WITH WATER
     Route: 048
     Dates: start: 20140729, end: 20140919
  5. VITAMIN C [Concomitant]
     Active Substance: ASCORBIC ACID
  6. CARVEDILOL. [Concomitant]
     Active Substance: CARVEDILOL
  7. PRAVASTATIN [Concomitant]
     Active Substance: PRAVASTATIN\PRAVASTATIN SODIUM
  8. CENTRUM SILVER [Concomitant]
     Active Substance: VITAMINS
  9. ASPIRIN. [Concomitant]
     Active Substance: ASPIRIN
  10. FEXOFANADINE [Concomitant]
  11. SILDENAFAIL [Concomitant]
  12. SILDENAFIL. [Suspect]
     Active Substance: SILDENAFIL
     Indication: PULMONARY HYPERTENSION
     Dosage: 270 TABLETS 3 TIMES IN 24 HR PERIOD BY MOUTH WITH WATER
     Route: 048
     Dates: start: 20140729, end: 20140919

REACTIONS (9)
  - Flushing [None]
  - Swelling face [None]
  - Product substitution issue [None]
  - Product formulation issue [None]
  - Product label issue [None]
  - Nausea [None]
  - Dyspnoea [None]
  - Malaise [None]
  - Product quality issue [None]

NARRATIVE: CASE EVENT DATE: 20140912
